FAERS Safety Report 11680389 (Version 2)
Quarter: 2015Q4

REPORT INFORMATION
  Report Type: Spontaneous
  Country: US (occurrence: US)
  Receive Date: 20151027
  Receipt Date: 20151104
  Transmission Date: 20160304
  Serious: No
  Sender: FDA-Public Use
  Company Number: US-ELI_LILLY_AND_COMPANY-US201007006818

PATIENT
  Age: 68 Year
  Sex: Female

DRUGS (8)
  1. FORTEO [Suspect]
     Active Substance: TERIPARATIDE
     Dosage: 20 UG, DAILY (1/D)
     Route: 065
  2. PLAVIX [Concomitant]
     Active Substance: CLOPIDOGREL BISULFATE
  3. FORTEO [Suspect]
     Active Substance: TERIPARATIDE
     Dosage: 20 UG, DAILY (1/D)
  4. ASPIRIN. [Concomitant]
     Active Substance: ASPIRIN
  5. CALTRATE /00108001/ [Concomitant]
  6. FORTEO [Suspect]
     Active Substance: TERIPARATIDE
     Indication: OSTEOPOROSIS
     Dosage: 20 UG, DAILY (1/D)
     Dates: end: 20100723
  7. FORTEO [Suspect]
     Active Substance: TERIPARATIDE
     Dosage: 20 UG, QD
  8. FORTEO [Suspect]
     Active Substance: TERIPARATIDE
     Dosage: 20 UG, DAILY (1/D)

REACTIONS (21)
  - Movement disorder [Unknown]
  - Chronic obstructive pulmonary disease [Unknown]
  - Pain in extremity [Recovered/Resolved]
  - Pyrexia [Unknown]
  - Pain in extremity [Not Recovered/Not Resolved]
  - Back pain [Unknown]
  - Dyspepsia [Unknown]
  - Nasopharyngitis [Unknown]
  - Malaise [Unknown]
  - Cardiac flutter [Unknown]
  - Injection site pain [Unknown]
  - Weight increased [Not Recovered/Not Resolved]
  - Asthenia [Unknown]
  - Injection site bruising [Unknown]
  - Dyspnoea [Unknown]
  - Bone pain [Recovered/Resolved]
  - Bronchitis [Unknown]
  - Blood blister [Recovering/Resolving]
  - Influenza [Unknown]
  - Eye disorder [Unknown]
  - Bronchitis [Unknown]

NARRATIVE: CASE EVENT DATE: 20100722
